FAERS Safety Report 13449904 (Version 2)
Quarter: 2017Q2

REPORT INFORMATION
  Report Type: Spontaneous
  Country: US (occurrence: US)
  Receive Date: 20170417
  Receipt Date: 20170519
  Transmission Date: 20170830
  Serious: No
  Sender: FDA-Public Use
  Company Number: US-BION-20160245

PATIENT
  Age: 71 Year
  Sex: Male
  Weight: 308.44 kg

DRUGS (5)
  1. LISINOPRIL. [Concomitant]
     Active Substance: LISINOPRIL
  2. ATORVASTATIN [Concomitant]
     Active Substance: ATORVASTATIN
  3. MOTRIN [Concomitant]
     Active Substance: IBUPROFEN
  4. ALEVE [Suspect]
     Active Substance: NAPROXEN SODIUM
     Indication: ARTHRITIS
     Route: 048
  5. IBUPROFEN CAPSULES [Suspect]
     Active Substance: IBUPROFEN
     Route: 048

REACTIONS (2)
  - Poor quality drug administered [Unknown]
  - Product physical issue [Unknown]
